FAERS Safety Report 6368267-0 (Version None)
Quarter: 2009Q3

REPORT INFORMATION
  Report Type: 
  Country: None (occurrence: None)
  Receive Date: 20090922
  Receipt Date: 20090911
  Transmission Date: 20100115
  Serious: Yes (Other)
  Sender: FDA-Public Use
  Company Number: US-ELI_LILLY_AND_COMPANY-US200909002690

PATIENT
  Sex: Female

DRUGS (7)
  1. FORTEO [Suspect]
  2. FORTEO [Suspect]
  3. FORTEO [Suspect]
  4. BENICAR [Concomitant]
  5. VYTORIN [Concomitant]
  6. CALCIUM [Concomitant]
  7. VITAMIN D [Concomitant]

REACTIONS (5)
  - FALL [None]
  - HYPERHIDROSIS [None]
  - LOSS OF CONSCIOUSNESS [None]
  - RETCHING [None]
  - SYNCOPE [None]
